FAERS Safety Report 7610070-5 (Version None)
Quarter: 2011Q3

REPORT INFORMATION
  Report Type: 
  Country: None (occurrence: None)
  Receive Date: 20110715
  Receipt Date: 20110707
  Transmission Date: 20111222
  Serious: No
  Sender: FDA-Public Use
  Company Number: US-BIOGENIDEC-2011BI013815

PATIENT
  Sex: Female

DRUGS (18)
  1. ACYCLOVIR [Concomitant]
     Indication: HERPES ZOSTER
     Route: 048
  2. CALCIUM/ VITAMIN D [Concomitant]
  3. METOPROLOL TARTRATE [Concomitant]
  4. MODAFANIL [Concomitant]
  5. TRAMADOL HCL [Concomitant]
  6. OMEPRAZOLE [Concomitant]
  7. DOCUSATE [Concomitant]
  8. VICODIN [Concomitant]
  9. NITROFURANTOIN [Concomitant]
  10. TIZANIDINE HCL [Concomitant]
  11. BACLOFEN [Concomitant]
  12. PROCHLORPERAZINE TAB [Concomitant]
  13. TYSABRI [Suspect]
     Indication: MULTIPLE SCLEROSIS
     Route: 042
     Dates: start: 20090320, end: 20100915
  14. AMITRIPTYLINE HCL [Concomitant]
  15. ALLEGRA [Concomitant]
  16. LYRICA [Concomitant]
  17. SIMVASTATIN [Concomitant]
  18. DETROL [Concomitant]

REACTIONS (3)
  - HERPES ZOSTER [None]
  - MIGRAINE [None]
  - MULTIPLE SCLEROSIS RELAPSE [None]
